FAERS Safety Report 7638383-1 (Version None)
Quarter: 2011Q3

REPORT INFORMATION
  Report Type: 
  Country: None (occurrence: None)
  Receive Date: 20110727
  Receipt Date: 20110719
  Transmission Date: 20111222
  Serious: Yes (Other)
  Sender: FDA-Public Use
  Company Number: US-AMGEN-USASP2011020471

PATIENT
  Age: 76 Year
  Sex: Female
  Weight: 76.644 kg

DRUGS (3)
  1. PROLIA [Suspect]
     Dates: start: 20101229
  2. PROLIA [Suspect]
     Indication: OSTEOPOROSIS POSTMENOPAUSAL
     Dosage: 60 MG, Q6MO
     Route: 030
     Dates: start: 20110204
  3. ADVAIR DISKUS 100/50 [Concomitant]

REACTIONS (7)
  - INCORRECT ROUTE OF DRUG ADMINISTRATION [None]
  - DEVICE BREAKAGE [None]
  - BONE LOSS [None]
  - DENTAL DISCOMFORT [None]
  - GINGIVAL INFECTION [None]
  - GINGIVAL ABSCESS [None]
  - MASTICATION DISORDER [None]
